FAERS Safety Report 6526194-X (Version None)
Quarter: 2009Q4

REPORT INFORMATION
  Report Type: 
  Country: None (occurrence: None)
  Receive Date: 20091228
  Receipt Date: 20091216
  Transmission Date: 20100525
  Serious: Yes (Other)
  Sender: FDA-Public Use
  Company Number: 234630K09USA

PATIENT
  Age: 51 Year
  Sex: Female

DRUGS (5)
  1. REBIF [Suspect]
     Indication: MULTIPLE SCLEROSIS
     Dosage: 44 MCG, 3 IN 1 WEEKS, SUBCUTANEOUS
     Route: 058
     Dates: start: 20070903
  2. BUPROPION HCL [Concomitant]
  3. DETROL LA [Concomitant]
  4. NEXIUM [Concomitant]
  5. FLUOXETINE [Concomitant]

REACTIONS (1)
  - BREAST CANCER FEMALE [None]
